FAERS Safety Report 5031984-9 (Version None)
Quarter: 2006Q2

REPORT INFORMATION
  Report Type: 
  Country: None (occurrence: None)
  Receive Date: 20060621
  Receipt Date: 20060612
  Transmission Date: 20061013
  Serious: Yes (Other)
  Sender: FDA-Public Use
  Company Number: SK-ABBOTT-06P-260-0335903-00

PATIENT
  Age: 40 Year
  Sex: Male
  Weight: 87 kg

DRUGS (8)
  1. ZEMPLAR [Suspect]
     Indication: DRUG USE FOR UNKNOWN INDICATION
     Route: 042
     Dates: start: 20060504, end: 20060606
  2. FUROSEMIDE [Concomitant]
     Indication: HYPERTENSION
     Route: 048
  3. RAMIPRIL [Concomitant]
     Indication: HYPERTENSION
     Route: 048
  4. METOPROLOL TARTRATE [Concomitant]
     Indication: HYPERTENSION
     Route: 048
  5. ACETYLSALICYLIC ACID SRT [Concomitant]
     Indication: DRUG USE FOR UNKNOWN INDICATION
     Route: 048
  6. KETOSTERIL [Concomitant]
     Indication: DRUG USE FOR UNKNOWN INDICATION
  7. METHYLPREDNISOLONE [Concomitant]
     Indication: DRUG USE FOR UNKNOWN INDICATION
     Route: 048
  8. ISOSORBIDE DINITRATE [Concomitant]
     Indication: DRUG USE FOR UNKNOWN INDICATION

REACTIONS (1)
  - ARTHRALGIA [None]
